FAERS Safety Report 5328533-4 (Version None)
Quarter: 2007Q2

REPORT INFORMATION
  Report Type: 
  Country: None (occurrence: None)
  Receive Date: 20070518
  Receipt Date: 20070517
  Transmission Date: 20071010
  Serious: Yes (Hospitalization)
  Sender: FDA-Public Use
  Company Number: US-GENENTECH-238230

PATIENT
  Sex: Female
  Weight: 63.492 kg

DRUGS (5)
  1. RAPTIVA [Suspect]
     Indication: PSORIASIS
     Dosage: 0.6 ML, 1/WEEK
     Route: 058
     Dates: start: 20050101
  2. BLOOD PRESSURE MEDICATION NOS [Concomitant]
     Indication: DRUG USE FOR UNKNOWN INDICATION
  3. CHOLESTEROL LOWERING DRUG [Concomitant]
     Indication: DRUG USE FOR UNKNOWN INDICATION
  4. CENTRUM SILVER [Concomitant]
     Indication: DRUG USE FOR UNKNOWN INDICATION
  5. ASPIRIN [Concomitant]
     Indication: DRUG USE FOR UNKNOWN INDICATION

REACTIONS (3)
  - ABDOMINAL PAIN [None]
  - DIARRHOEA [None]
  - DIVERTICULITIS [None]
